FAERS Safety Report 10120895 (Version 1)
Quarter: 2014Q2

REPORT INFORMATION
  Report Type: Spontaneous
  Country: US (occurrence: US)
  Receive Date: 20140425
  Receipt Date: 20140425
  Transmission Date: 20141212
  Serious: Yes (Other)
  Sender: FDA-Public Use
  Company Number: US-BRISTOL-MYERS SQUIBB COMPANY-20642021

PATIENT
  Age: 7 Decade
  Sex: Female

DRUGS (2)
  1. BYDUREON [Suspect]
     Indication: DIABETES MELLITUS
  2. CRESTOR [Suspect]
     Indication: BLOOD CHOLESTEROL INCREASED
     Dates: end: 201404

REACTIONS (1)
  - Rhabdomyolysis [Recovered/Resolved]
